FAERS Safety Report 23667265 (Version 1)
Quarter: 2024Q1

REPORT INFORMATION
  Report Type: Spontaneous
  Country: US (occurrence: US)
  Receive Date: 20240325
  Receipt Date: 20240325
  Transmission Date: 20240410
  Serious: No
  Sender: FDA-Public Use
  Company Number: US-STRIDES ARCOLAB LIMITED-2023SP018663

PATIENT
  Age: 28 Year
  Sex: Female

DRUGS (12)
  1. NALOXONE [Suspect]
     Active Substance: NALOXONE
     Indication: Drug use disorder
     Dosage: UNK
     Route: 065
  2. OXYCODONE [Suspect]
     Active Substance: OXYCODONE\OXYCODONE HYDROCHLORIDE
     Indication: Product used for unknown indication
     Dosage: 5 MILLIGRAM, EVERY 4 HRS
     Route: 065
  3. BUPRENORPHINE [Suspect]
     Active Substance: BUPRENORPHINE
     Indication: Drug use disorder
     Dosage: 150 MICROGRAM, EVERY 6 HRS, FOR 24H
     Route: 060
  4. BUPRENORPHINE [Suspect]
     Active Substance: BUPRENORPHINE
     Dosage: 450 MICROGRAM, EVERY 6 HRS, TWO DOSES
     Route: 060
  5. HYDROMORPHONE [Suspect]
     Active Substance: HYDROMORPHONE
     Indication: Drug withdrawal syndrome
     Dosage: UNK, 1 DOSE
     Route: 042
  6. HYDROMORPHONE [Suspect]
     Active Substance: HYDROMORPHONE
     Indication: Drug therapy
  7. BUPRENORPHINE\NALOXONE [Suspect]
     Active Substance: BUPRENORPHINE\NALOXONE
     Indication: Drug use disorder
     Dosage: 0.5 MILLIGRAM, EVERY 6 HRS, TWO DOSES
     Route: 060
  8. BUPRENORPHINE\NALOXONE [Suspect]
     Active Substance: BUPRENORPHINE\NALOXONE
     Dosage: 1 MILLIGRAM, EVERY 6 HRS, FOUR DOSES
     Route: 060
  9. BUPRENORPHINE\NALOXONE [Suspect]
     Active Substance: BUPRENORPHINE\NALOXONE
     Dosage: 2 MILLIGRAM, EVERY 6 HRS, FOUR DOSES
     Route: 060
  10. BUPRENORPHINE\NALOXONE [Suspect]
     Active Substance: BUPRENORPHINE\NALOXONE
     Dosage: 8 MILLIGRAM, BID, MAINTENANCE DOSE
     Route: 060
  11. CLONIDINE [Suspect]
     Active Substance: CLONIDINE
     Indication: Anxiety
     Dosage: 0.1 MILLIGRAM, TID
     Route: 065
  12. CLONIDINE [Suspect]
     Active Substance: CLONIDINE
     Indication: Irritability

REACTIONS (1)
  - Maternal exposure during pregnancy [Unknown]
